FAERS Safety Report 12195473 (Version 1)
Quarter: 2016Q1

REPORT INFORMATION
  Report Type: Spontaneous
  Country: US (occurrence: US)
  Receive Date: 20160321
  Receipt Date: 20160321
  Transmission Date: 20160526
  Serious: Yes (Other)
  Sender: FDA-Public Use
  Company Number: US-PFIZER INC-2016152631

PATIENT
  Age: 42 Year
  Sex: Female

DRUGS (4)
  1. ACTH [Concomitant]
     Active Substance: CORTICOTROPIN
     Indication: PEMPHIGUS
     Dosage: 3 COURSES
  2. ACTH [Concomitant]
     Active Substance: CORTICOTROPIN
     Dosage: 2600 MG, UNK
     Route: 042
     Dates: end: 19510515
  3. CORTISONE ACETATE. [Suspect]
     Active Substance: CORTISONE ACETATE
     Indication: PEMPHIGUS
     Dosage: UNK (1 COURSE DURING A PERIOD OF 1 YEAR)
  4. ACTH [Concomitant]
     Active Substance: CORTICOTROPIN
     Dosage: 580 MG, OVER A COURSE OF 28 DAYS
     Route: 042

REACTIONS (1)
  - Mental disorder [Recovered/Resolved]
